FAERS Safety Report 16038171 (Version 5)
Quarter: 2020Q1

REPORT INFORMATION
  Report Type: Spontaneous
  Country: US (occurrence: US)
  Receive Date: 20190305
  Receipt Date: 20200128
  Transmission Date: 20200409
  Serious: Yes (Disabling, Other)
  Sender: FDA-Public Use
  Company Number: US-ASTRAZENECA-2018SF33508

PATIENT
  Age: 52 Year
  Sex: Female
  Weight: 58.5 kg

DRUGS (24)
  1. ALBUTEROL. [Concomitant]
     Active Substance: ALBUTEROL
     Indication: ASTHMA
  2. SIMVASTATIN. [Concomitant]
     Active Substance: SIMVASTATIN
  3. LEVEMIR [Concomitant]
     Active Substance: INSULIN DETEMIR
  4. FLOVENT [Concomitant]
     Active Substance: FLUTICASONE PROPIONATE
  5. SENSIPAR [Concomitant]
     Active Substance: CINACALCET HYDROCHLORIDE
  6. PERCOCET [Concomitant]
     Active Substance: ACETAMINOPHEN\OXYCODONE HYDROCHLORIDE
     Indication: PAIN
  7. CARVEDILOL. [Concomitant]
     Active Substance: CARVEDILOL
  8. VALSARTAN. [Concomitant]
     Active Substance: VALSARTAN
  9. NIFEDIPINE. [Concomitant]
     Active Substance: NIFEDIPINE
  10. ALKA SETLZER [Concomitant]
     Dosage: 2 TEASPOONS DAILY
     Route: 065
  11. SEROQUEL [Concomitant]
     Active Substance: QUETIAPINE FUMARATE
  12. TUMS [Concomitant]
     Active Substance: CALCIUM CARBONATE
     Dosage: CHEW 2 DAILY AS NEEDED
     Route: 065
     Dates: start: 2016
  13. NEXIUM [Suspect]
     Active Substance: ESOMEPRAZOLE MAGNESIUM
     Indication: GASTROOESOPHAGEAL REFLUX DISEASE
     Route: 048
     Dates: start: 20120101, end: 20151201
  14. TUMS [Concomitant]
     Active Substance: CALCIUM CARBONATE
     Dosage: CHEW 2 DAILY AS NEEDED
     Route: 065
     Dates: start: 1999
  15. SEVELAMER [Concomitant]
     Active Substance: SEVELAMER
  16. IMIPENEM [Concomitant]
     Active Substance: IMIPENEM
  17. CLARITIN [Concomitant]
     Active Substance: LORATADINE
  18. CHLORHEXIDINE [Concomitant]
     Active Substance: CHLORHEXIDINE
  19. PROTONIX [Concomitant]
     Active Substance: PANTOPRAZOLE SODIUM
  20. TOBRAMYCIN. [Concomitant]
     Active Substance: TOBRAMYCIN
  21. AMLODIPINE [Concomitant]
     Active Substance: AMLODIPINE BESYLATE
  22. PREVACID [Suspect]
     Active Substance: LANSOPRAZOLE
     Indication: GASTROOESOPHAGEAL REFLUX DISEASE
     Route: 065
     Dates: start: 20120101, end: 20151201
  23. VITAMIN D3 [Concomitant]
     Active Substance: CHOLECALCIFEROL
     Indication: DIALYSIS
     Route: 065
     Dates: start: 201602, end: 2018
  24. TUMS [Concomitant]
     Active Substance: CALCIUM CARBONATE
     Dosage: CHEW 2 DAILY AS NEEDED
     Route: 065
     Dates: start: 1999

REACTIONS (9)
  - Hyperparathyroidism secondary [Unknown]
  - Depression [Unknown]
  - Renal injury [Unknown]
  - Nephrogenic anaemia [Unknown]
  - Chronic kidney disease [Not Recovered/Not Resolved]
  - End stage renal disease [Not Recovered/Not Resolved]
  - Sleep disorder [Unknown]
  - Renal failure [Unknown]
  - Acute kidney injury [Unknown]

NARRATIVE: CASE EVENT DATE: 2009
